FAERS Safety Report 9142773 (Version 1)
Quarter: 2013Q1

REPORT INFORMATION
  Report Type: Spontaneous
  Country: US (occurrence: US)
  Receive Date: 20130306
  Receipt Date: 20130306
  Transmission Date: 20140127
  Serious: Yes (Other)
  Sender: FDA-Public Use
  Company Number: US-BRISTOL-MYERS SQUIBB COMPANY-17419748

PATIENT
  Age: 47 Year
  Sex: Male

DRUGS (7)
  1. REYATAZ [Suspect]
  2. TRUVADA [Suspect]
  3. NORVIR [Suspect]
  4. ELAVIL [Suspect]
     Dosage: DOSE TAKEN ON 15JAN
  5. METOPROLOL [Concomitant]
  6. MS CONTIN [Concomitant]
  7. VICODIN [Concomitant]

REACTIONS (7)
  - Jaundice [Unknown]
  - Fall [Unknown]
  - Food poisoning [Unknown]
  - Influenza like illness [Unknown]
  - Dyspnoea [Unknown]
  - Swelling face [Unknown]
  - Feeling abnormal [Unknown]
